FAERS Safety Report 4400995-6 (Version None)
Quarter: 2004Q3

REPORT INFORMATION
  Report Type: 
  Country: None (occurrence: None)
  Receive Date: 20040907
  Receipt Date: 20030911
  Transmission Date: 20050211
  Serious: Yes (Other)
  Sender: FDA-Public Use
  Company Number: US-BRISTOL-MYERS SQUIBB COMPANY-12380325

PATIENT
  Age: 81 Year
  Sex: Female
  Weight: 52 kg

DRUGS (1)
  1. COUMADIN [Suspect]
     Indication: ATRIAL FIBRILLATION
     Dosage: PRESENT DOSE 1.25 MG/DAY, HISTORY OF VARYING DOSES.
     Route: 048
     Dates: start: 20010503

REACTIONS (1)
  - INTERNATIONAL NORMALISED RATIO INCREASED [None]
